FAERS Safety Report 5086874-2 (Version None)
Quarter: 2006Q3

REPORT INFORMATION
  Report Type: 
  Country: None (occurrence: None)
  Receive Date: 20060818
  Receipt Date: 20060816
  Transmission Date: 20061208
  Serious: Yes (Death, Hospitalization)
  Sender: FDA-Public Use
  Company Number: 163-21880-06080416

PATIENT
  Age: 43 Year
  Sex: Male

DRUGS (1)
  1. REVLIMID [Suspect]
     Indication: MULTIPLE MYELOMA
     Dosage: DAILY ORAL
     Route: 048
     Dates: start: 20060703

REACTIONS (1)
  - INTESTINAL PERFORATION [None]
